FAERS Safety Report 7297704-2 (Version None)
Quarter: 2011Q1

REPORT INFORMATION
  Report Type: 
  Country: None (occurrence: None)
  Receive Date: 20110216
  Receipt Date: 20110204
  Transmission Date: 20110831
  Serious: Yes (Hospitalization)
  Sender: FDA-Public Use
  Company Number: US-ELI_LILLY_AND_COMPANY-US201009001033

PATIENT
  Sex: Female

DRUGS (16)
  1. FORTEO [Suspect]
     Indication: OSTEOPOROSIS
     Dosage: 20 UG, DAILY (1/D)
     Route: 065
     Dates: start: 20100501
  2. FORTEO [Suspect]
     Dosage: 20 UG, DAILY (1/D)
     Route: 065
  3. ANALGESICS [Concomitant]
     Indication: PAIN
  4. VITAMIN D [Concomitant]
  5. ATIVAN [Concomitant]
  6. POTASSIUM [Concomitant]
  7. SIMVASTATIN [Concomitant]
  8. FERSOLATE [Concomitant]
  9. DELTALIN [Concomitant]
  10. SENNA [Concomitant]
  11. MULTIVITAMIN [Concomitant]
  12. STOOL SOFTENER [Concomitant]
  13. PERCOCET [Concomitant]
  14. VITAMIN B COMPLEX [Concomitant]
  15. CALCIUM [Concomitant]
  16. ANTIBIOTICS [Concomitant]

REACTIONS (8)
  - PELVIC FRACTURE [None]
  - SKELETAL INJURY [None]
  - LIMB INJURY [None]
  - WEIGHT BEARING DIFFICULTY [None]
  - SPINAL FRACTURE [None]
  - JOINT INJURY [None]
  - ROAD TRAFFIC ACCIDENT [None]
  - LOWER LIMB FRACTURE [None]
